FAERS Safety Report 5106373-9 (Version None)
Quarter: 2006Q3

REPORT INFORMATION
  Report Type: 
  Country: None (occurrence: None)
  Receive Date: 20060731
  Receipt Date: 20060421
  Transmission Date: 20061208
  Serious: Yes (Other)
  Sender: FDA-Public Use
  Company Number: US-JNJFOC-20060404989

PATIENT

DRUGS (2)
  1. RISPERDAL CONSTA [Suspect]
     Indication: HALLUCINATION, AUDITORY
     Dates: start: 20050101
  2. SEROQUEL [Suspect]
     Indication: DRUG USE FOR UNKNOWN INDICATION
     Dates: end: 20060101

REACTIONS (1)
  - DIABETIC KETOACIDOSIS [None]
